FAERS Safety Report 10064522 (Version 2)
Quarter: 2014Q2

REPORT INFORMATION
  Report Type: Report from Study
  Country: FR (occurrence: FR)
  Receive Date: 20140408
  Receipt Date: 20140421
  Transmission Date: 20141212
  Serious: Yes (Other)
  Sender: FDA-Public Use
  Company Number: FR-ROCHE-1378099

PATIENT
  Sex: Male

DRUGS (13)
  1. RITUXIMAB [Suspect]
     Indication: MANTLE CELL LYMPHOMA
     Dosage: CYCLE 1
     Route: 065
     Dates: start: 20101021
  2. RITUXIMAB [Suspect]
     Dosage: CYCLE 2
     Route: 065
     Dates: start: 20101115
  3. RITUXIMAB [Suspect]
     Dosage: CYCLE 3
     Route: 065
     Dates: start: 20101206
  4. RITUXIMAB [Suspect]
     Dosage: CYCLE 4
     Route: 065
     Dates: start: 20101227
  5. RITUXIMAB [Suspect]
     Dosage: INTENSIFICATION
     Route: 065
     Dates: start: 20110201
  6. RITUXIMAB [Suspect]
     Dosage: MAINTAINANCE DOSE
     Route: 041
     Dates: start: 20110411, end: 20131127
  7. DEXAMETHASONE [Concomitant]
     Indication: MANTLE CELL LYMPHOMA
     Route: 065
     Dates: start: 20101021
  8. CYTARABINE [Concomitant]
     Indication: MANTLE CELL LYMPHOMA
     Route: 065
     Dates: start: 20101021
  9. CARMUSTINE [Concomitant]
     Route: 065
     Dates: start: 20110201
  10. ETOPOSIDE PHOSPHATE [Concomitant]
     Route: 065
     Dates: start: 20110201
  11. MELPHALAN [Concomitant]
     Route: 065
     Dates: start: 20110201
  12. CISPLATIN [Concomitant]
     Indication: MANTLE CELL LYMPHOMA
     Route: 065
     Dates: start: 20101021
  13. CISPLATIN [Concomitant]
     Route: 065
     Dates: start: 20140331

REACTIONS (1)
  - Small cell lung cancer [Not Recovered/Not Resolved]
